FAERS Safety Report 7542859-5 (Version None)
Quarter: 2011Q2

REPORT INFORMATION
  Report Type: 
  Country: None (occurrence: None)
  Receive Date: 20110613
  Receipt Date: 20110603
  Transmission Date: 20111010
  Serious: No
  Sender: FDA-Public Use
  Company Number: US-PFIZER INC-2011121405

PATIENT
  Sex: Female

DRUGS (5)
  1. ATARAX [Concomitant]
     Indication: HYPERSENSITIVITY
     Dosage: 50 MG, AS NEEDED
     Route: 048
  2. AZITHROMYCIN [Suspect]
     Dosage: 250 MG, 1X/DAY
     Route: 048
     Dates: start: 20110602
  3. AZITHROMYCIN [Suspect]
     Indication: EAR INFECTION
     Dosage: 250 MG, 2X/DAY
     Route: 048
     Dates: start: 20110601
  4. TRIAMCINOLONE [Concomitant]
     Indication: HYPERSENSITIVITY
     Dosage: AS NEEDED
  5. WELCHOL [Concomitant]
     Indication: BLOOD CHOLESTEROL INCREASED
     Dosage: 3X/DAY
     Route: 048

REACTIONS (6)
  - DIARRHOEA [None]
  - HYPERSENSITIVITY [None]
  - OEDEMA PERIPHERAL [None]
  - ABDOMINAL PAIN UPPER [None]
  - NERVOUSNESS [None]
  - RASH [None]
